FAERS Safety Report 25958359 (Version 2)
Quarter: 2025Q4

REPORT INFORMATION
  Report Type: Report from Study
  Country: JP (occurrence: JP)
  Receive Date: 20251024
  Receipt Date: 20251028
  Transmission Date: 20260118
  Serious: Yes (Death)
  Sender: PFIZER
  Company Number: JP-PFIZER INC-PV202500125936

PATIENT
  Age: 68 Year
  Sex: Male

DRUGS (1)
  1. ELRANATAMAB [Suspect]
     Active Substance: ELRANATAMAB
     Dosage: UNK
     Dates: start: 20240617

REACTIONS (1)
  - Influenza [Fatal]

NARRATIVE: CASE EVENT DATE: 20241201
